FAERS Safety Report 21094483 (Version 2)
Quarter: 2022Q3

REPORT INFORMATION
  Report Type: Report from Study
  Country: FR (occurrence: FR)
  Receive Date: 20220718
  Receipt Date: 20220812
  Transmission Date: 20221026
  Serious: Yes (Hospitalization)
  Sender: FDA-Public Use
  Company Number: FR-SA-SAC20220713002178

PATIENT
  Age: 62 Year
  Sex: Female
  Weight: 70 kg

DRUGS (9)
  1. ISATUXIMAB [Suspect]
     Active Substance: ISATUXIMAB
     Indication: Plasma cell myeloma
     Dosage: 710 MG, DAY 1, DAY 15
     Route: 042
     Dates: start: 20220516, end: 20220516
  2. ISATUXIMAB [Suspect]
     Active Substance: ISATUXIMAB
     Dosage: UNK
     Dates: start: 20220613, end: 20220613
  3. CARFILZOMIB [Suspect]
     Active Substance: CARFILZOMIB
     Indication: Plasma cell myeloma
     Dosage: 36.80 MG, DAY 1, 15, 18
     Route: 042
     Dates: start: 20220516, end: 20220516
  4. CARFILZOMIB [Suspect]
     Active Substance: CARFILZOMIB
     Dosage: UNK
     Dates: start: 20220613, end: 20220613
  5. LENALIDOMIDE [Suspect]
     Active Substance: LENALIDOMIDE
     Indication: Plasma cell myeloma
     Dosage: 25 MG DAY 1 TO DAY 21
     Route: 048
     Dates: start: 20220516, end: 20220516
  6. LENALIDOMIDE [Suspect]
     Active Substance: LENALIDOMIDE
     Dosage: UNK
     Dates: start: 20220613, end: 20220613
  7. LENALIDOMIDE [Suspect]
     Active Substance: LENALIDOMIDE
     Dosage: 25 MG DAY 1 TO DAY 21
     Route: 048
     Dates: start: 20220703, end: 20220703
  8. DEXAMETHASONE [Suspect]
     Active Substance: DEXAMETHASONE
     Indication: Plasma cell myeloma
     Dosage: 40 MG, DAY 1, 8, 15, 22
     Route: 048
     Dates: start: 20220516, end: 20220516
  9. DEXAMETHASONE [Suspect]
     Active Substance: DEXAMETHASONE
     Dosage: UNK
     Dates: start: 20220613, end: 20220613

REACTIONS (1)
  - Arthritis bacterial [Recovered/Resolved with Sequelae]

NARRATIVE: CASE EVENT DATE: 20220711
